FAERS Safety Report 17531812 (Version 1)
Quarter: 2020Q1

REPORT INFORMATION
  Report Type: Spontaneous
  Country: FR (occurrence: FR)
  Receive Date: 20200311
  Receipt Date: 20200311
  Transmission Date: 20200409
  Serious: Yes (Hospitalization)
  Sender: FDA-Public Use
  Company Number: FR-EMD SERONO-E2B_90075636

PATIENT
  Age: 77 Year
  Sex: Male
  Weight: 77 kg

DRUGS (11)
  1. METFORMIN [Suspect]
     Active Substance: METFORMIN HYDROCHLORIDE
     Indication: TYPE 2 DIABETES MELLITUS
     Route: 048
     Dates: end: 20200208
  2. PERMIXON [Concomitant]
     Active Substance: HERBALS\SAW PALMETTO
     Indication: PRODUCT USED FOR UNKNOWN INDICATION
  3. XATRAL [Concomitant]
     Active Substance: ALFUZOSIN
     Indication: PRODUCT USED FOR UNKNOWN INDICATION
  4. LOVENOX [Concomitant]
     Active Substance: ENOXAPARIN SODIUM
     Indication: PRODUCT USED FOR UNKNOWN INDICATION
  5. LEVOFLOXACINE [Concomitant]
     Active Substance: LEVOFLOXACIN
     Indication: PRODUCT USED FOR UNKNOWN INDICATION
  6. FUCIDINE                           /00065702/ [Suspect]
     Active Substance: FUSIDATE SODIUM
     Indication: OSTEITIS
     Route: 048
     Dates: start: 20200113, end: 20200208
  7. ATORVASTATINE [Concomitant]
     Active Substance: ATORVASTATIN
     Indication: PRODUCT USED FOR UNKNOWN INDICATION
  8. RILMENIDINE [Concomitant]
     Active Substance: RILMENIDINE
     Indication: PRODUCT USED FOR UNKNOWN INDICATION
  9. LERCAPRESS [Concomitant]
     Indication: PRODUCT USED FOR UNKNOWN INDICATION
  10. KARDEGIC [Concomitant]
     Active Substance: ASPIRIN DL-LYSINE
     Indication: PRODUCT USED FOR UNKNOWN INDICATION
  11. ADENURIC [Concomitant]
     Active Substance: FEBUXOSTAT
     Indication: PRODUCT USED FOR UNKNOWN INDICATION

REACTIONS (4)
  - Vomiting [Recovered/Resolved]
  - Acute kidney injury [Recovered/Resolved]
  - Hypovolaemic shock [Recovered/Resolved]
  - Diarrhoea [Recovered/Resolved]

NARRATIVE: CASE EVENT DATE: 202002
